FAERS Safety Report 23821112 (Version 2)
Quarter: 2024Q2

REPORT INFORMATION
  Report Type: Spontaneous
  Country: BR (occurrence: BR)
  Receive Date: 20240506
  Receipt Date: 20240604
  Transmission Date: 20240716
  Serious: Yes (Disabling, Other)
  Sender: FDA-Public Use
  Company Number: BR-ORGANON-O2405BRA000257

PATIENT
  Sex: Female

DRUGS (1)
  1. ETONOGESTREL [Suspect]
     Active Substance: ETONOGESTREL
     Dosage: 1 IMPLANT
     Route: 059

REACTIONS (6)
  - Vulvovaginal pain [Recovered/Resolved]
  - Implant site hypersensitivity [Recovered/Resolved]
  - Myalgia [Recovered/Resolved]
  - Vulvovaginal disorder [Recovered/Resolved]
  - Sensitisation [Recovered/Resolved]
  - Menstruation irregular [Not Recovered/Not Resolved]
